FAERS Safety Report 7248546-5 (Version None)
Quarter: 2011Q1

REPORT INFORMATION
  Report Type: 
  Country: None (occurrence: None)
  Receive Date: 20110127
  Receipt Date: 20110118
  Transmission Date: 20110831
  Serious: Yes (Death, Hospitalization, Other)
  Sender: FDA-Public Use
  Company Number: FR-BAXTER-2011BH001688

PATIENT
  Age: 85 Year
  Sex: Female

DRUGS (8)
  1. DIANEAL PD-1 [Suspect]
     Indication: PERITONEAL DIALYSIS
     Route: 033
     Dates: start: 20100501
  2. EXTRANEAL [Suspect]
     Indication: PERITONEAL DIALYSIS
     Route: 033
     Dates: start: 20100501
  3. MOPRAL [Concomitant]
     Indication: PRODUCT USED FOR UNKNOWN INDICATION
     Route: 065
  4. DIFFU K [Concomitant]
     Indication: PRODUCT USED FOR UNKNOWN INDICATION
     Route: 065
  5. ACETAMINOPHEN [Concomitant]
     Indication: PAIN
     Route: 065
  6. EPREX                                   /UNK/ [Concomitant]
     Indication: PRODUCT USED FOR UNKNOWN INDICATION
     Route: 065
  7. ACETYLSALICYLIC ACID SRT [Concomitant]
     Indication: PRODUCT USED FOR UNKNOWN INDICATION
     Route: 065
  8. SOTALOL [Concomitant]
     Indication: PRODUCT USED FOR UNKNOWN INDICATION
     Route: 065

REACTIONS (16)
  - GENERAL PHYSICAL HEALTH DETERIORATION [None]
  - MALAISE [None]
  - PYREXIA [None]
  - DEATH [None]
  - INFECTION [None]
  - ASTHENIA [None]
  - PERITONEAL DIALYSIS COMPLICATION [None]
  - PULMONARY CONGESTION [None]
  - LUNG DISORDER [None]
  - IMPAIRED SELF-CARE [None]
  - NAUSEA [None]
  - DECREASED APPETITE [None]
  - VOMITING [None]
  - PERITONITIS BACTERIAL [None]
  - GASTROINTESTINAL DISORDER [None]
  - ABDOMINAL PAIN [None]
